FAERS Safety Report 5996755-5 (Version None)
Quarter: 2008Q4

REPORT INFORMATION
  Report Type: 
  Country: None (occurrence: None)
  Receive Date: 20081212
  Receipt Date: 20081023
  Transmission Date: 20090506
  Serious: No
  Sender: FDA-Public Use
  Company Number: US-ABBOTT-08P-163-0483648-00

PATIENT
  Sex: Female
  Weight: 72.64 kg

DRUGS (10)
  1. HUMIRA [Suspect]
     Indication: CROHN'S DISEASE
     Route: 058
     Dates: start: 20080820
  2. PREDNISONE TAB [Concomitant]
     Indication: DRUG USE FOR UNKNOWN INDICATION
     Route: 048
     Dates: start: 20070801
  3. ESOMEPRAZOLE MAGNESIUM [Concomitant]
     Indication: GASTRIC DISORDER
     Route: 048
     Dates: start: 20080801
  4. CYANOCOBALAMIN [Concomitant]
     Indication: CROHN'S DISEASE
     Route: 050
     Dates: start: 20070701
  5. ESZOPICLONE [Concomitant]
     Indication: DRUG USE FOR UNKNOWN INDICATION
     Route: 048
  6. LEVOTHYROXINE SODIUM [Concomitant]
     Indication: BASEDOW'S DISEASE
     Route: 048
     Dates: start: 20080301
  7. IRON INFUSION [Concomitant]
     Indication: CROHN'S DISEASE
     Route: 042
     Dates: start: 20080901
  8. CYCLOSPORINE [Concomitant]
     Indication: DRY EYE
     Route: 047
  9. CLONIDINE [Concomitant]
     Indication: DRUG USE FOR UNKNOWN INDICATION
     Route: 048
  10. ANOVLAR [Concomitant]
     Indication: CONTRACEPTION
     Route: 048

REACTIONS (6)
  - DRUG DELIVERY SYSTEM MALFUNCTION [None]
  - INCORRECT DOSE ADMINISTERED [None]
  - LOCALISED INFECTION [None]
  - PAIN [None]
  - PYREXIA [None]
  - RASH [None]
